FAERS Safety Report 9510513 (Version 1)
Quarter: 2013Q3

REPORT INFORMATION
  Report Type: Spontaneous
  Country: US (occurrence: US)
  Receive Date: 20130909
  Receipt Date: 20130909
  Transmission Date: 20140515
  Serious: Yes (Hospitalization, Other)
  Sender: FDA-Public Use
  Company Number: US-B.I. PHARMACEUTICALS,INC./RIDGEFIELD-2013-BI-27157GD

PATIENT
  Sex: Male

DRUGS (9)
  1. AMANTADINE [Suspect]
     Indication: PARKINSON^S DISEASE
  2. PRAMIPEXOLE [Suspect]
     Indication: PARKINSON^S DISEASE
     Dosage: UP TO 2.5 MG
  3. CARBIDOPA-LEVODOPA [Suspect]
     Indication: PARKINSON^S DISEASE
     Dosage: LEVODOPA-EQUIVALENT DOSE: 3140 MG (PREOPERATIVELY)
  4. CARBIDOPA-LEVODOPA [Suspect]
     Dosage: LEVODOPA-EQUIVALENT DOSE: 1048 MG (POSTPERATIVELY)
  5. ENTACAPONE [Suspect]
     Indication: PARKINSON^S DISEASE
  6. SELEGILINE [Suspect]
     Indication: PARKINSON^S DISEASE
  7. BACLOFEN [Suspect]
     Indication: PARKINSON^S DISEASE
  8. ESCITALOPRAM [Suspect]
     Indication: PARKINSON^S DISEASE
  9. CALCIUM CARBONATE [Concomitant]

REACTIONS (11)
  - Psychotic disorder [Recovered/Resolved]
  - Anxiety [Recovered/Resolved]
  - Paranoia [Recovered/Resolved]
  - Delusion [Recovered/Resolved]
  - Agitation [Recovered/Resolved]
  - Aggression [Recovered/Resolved]
  - Pathological gambling [Recovered/Resolved]
  - Hypersexuality [Recovered/Resolved]
  - Impulsive behaviour [Recovered/Resolved]
  - Jealous delusion [Recovered/Resolved]
  - Drug ineffective [Unknown]
